FAERS Safety Report 25670363 (Version 1)
Quarter: 2025Q3

REPORT INFORMATION
  Report Type: Spontaneous
  Country: US (occurrence: US)
  Receive Date: 20250812
  Receipt Date: 20250812
  Transmission Date: 20251021
  Serious: No
  Sender: PFIZER
  Company Number: US-PFIZER INC-202500158876

PATIENT
  Age: 61 Year
  Sex: Female

DRUGS (1)
  1. LITFULO [Suspect]
     Active Substance: RITLECITINIB TOSYLATE
     Dosage: 1 CAPSULE BY MOUTH ONCE DAILY
     Route: 048
     Dates: start: 20241211

REACTIONS (2)
  - Drug ineffective [Unknown]
  - Product dose omission issue [Unknown]
